FAERS Safety Report 6160474-5 (Version None)
Quarter: 2009Q2

REPORT INFORMATION
  Report Type: 
  Country: None (occurrence: None)
  Receive Date: 20090415
  Receipt Date: 20090415
  Transmission Date: 20091009
  Serious: Yes (Hospitalization)
  Sender: FDA-Public Use
  Company Number: None

PATIENT
  Sex: Male
  Weight: 82.5547 kg

DRUGS (13)
  1. PEMOTREXED 500 MG/M2 LILLY [Suspect]
     Indication: HEAD AND NECK CANCER
     Dosage: 500MG/M2 Q 3 WEEKS IV
     Route: 042
     Dates: start: 20090318, end: 20090408
  2. CETUXIMAB 250MG/M2 LILLY [Suspect]
     Indication: HEAD AND NECK CANCER
     Dosage: 250 MG/M2 WEEKLY IV
     Route: 042
     Dates: start: 20090311, end: 20090408
  3. BEVACIZUMAB -GENENTECH [Suspect]
     Dosage: 15MG/KG Q 3 WEEKS IV
     Route: 042
     Dates: start: 20090311, end: 20090408
  4. VIT B12 [Concomitant]
  5. FOLIC ACID [Concomitant]
  6. CIPROFLOXACIN HCL [Concomitant]
  7. NEXIUM [Concomitant]
  8. FENTANYL [Concomitant]
  9. VICODIN [Concomitant]
  10. ROXICET [Concomitant]
  11. ALEGRA [Concomitant]
  12. SYNTHROID [Concomitant]
  13. MINOCYCLINE HCL [Concomitant]

REACTIONS (4)
  - DYSPHAGIA [None]
  - NAUSEA [None]
  - PAIN [None]
  - VOMITING [None]
